FAERS Safety Report 20826182 (Version 1)
Quarter: 2022Q2

REPORT INFORMATION
  Report Type: Spontaneous
  Country: US (occurrence: US)
  Receive Date: 20220513
  Receipt Date: 20220513
  Transmission Date: 20220721
  Serious: Yes (Disabling)
  Sender: FDA-Public Use
  Company Number: US-SANOFI-01098447

PATIENT
  Sex: Female

DRUGS (1)
  1. DUPIXENT [Suspect]
     Active Substance: DUPILUMAB
     Indication: Asthma
     Dosage: REF DRUG INTERVAL DOSAGE : REF DRUG TREATMENT DURATION:REF
     Route: 065

REACTIONS (3)
  - Foot fracture [Unknown]
  - Fear of injection [Unknown]
  - Chronic obstructive pulmonary disease [Unknown]
